FAERS Safety Report 7475428-6 (Version None)
Quarter: 2011Q2

REPORT INFORMATION
  Report Type: 
  Country: None (occurrence: None)
  Receive Date: 20110512
  Receipt Date: 20110427
  Transmission Date: 20111010
  Serious: Yes (Hospitalization)
  Sender: FDA-Public Use
  Company Number: US-JNJFOC-20110412382

PATIENT
  Age: 38 Year
  Sex: Male

DRUGS (6)
  1. INVEGA SUSTENNA [Suspect]
     Route: 030
  2. TRAZODONE HCL [Concomitant]
     Route: 065
  3. INVEGA [Suspect]
     Indication: PRODUCT USED FOR UNKNOWN INDICATION
     Route: 048
  4. ZYPREXA [Concomitant]
     Route: 065
  5. INVEGA SUSTENNA [Suspect]
     Indication: PRODUCT USED FOR UNKNOWN INDICATION
     Route: 030
  6. ROZEREM [Concomitant]
     Route: 065

REACTIONS (2)
  - RESTLESS LEGS SYNDROME [None]
  - HOSPITALISATION [None]
